FAERS Safety Report 4489264-6 (Version None)
Quarter: 2004Q4

REPORT INFORMATION
  Report Type: 
  Country: None (occurrence: None)
  Receive Date: 20041029
  Receipt Date: 20041005
  Transmission Date: 20050328
  Serious: Yes (Hospitalization, Other)
  Sender: FDA-Public Use
  Company Number: HQWYE606807OCT04

PATIENT
  Age: 30 Year
  Sex: Female
  Weight: 41.7 kg

DRUGS (3)
  1. ENBREL [Suspect]
     Indication: RHEUMATOID ARTHRITIS
     Route: 058
     Dates: start: 20040410, end: 20041003
  2. METHOTREXATE [Suspect]
     Route: 048
     Dates: start: 20040412, end: 20041001
  3. METHOTREXATE [Suspect]
     Dosage: UNKNOWN
     Dates: end: 20040901

REACTIONS (2)
  - ALANINE AMINOTRANSFERASE INCREASED [None]
  - ASPARTATE AMINOTRANSFERASE INCREASED [None]
